FAERS Safety Report 24905660 (Version 1)
Quarter: 2025Q1

REPORT INFORMATION
  Report Type: Spontaneous
  Country: CA (occurrence: CA)
  Receive Date: 20250130
  Receipt Date: 20250130
  Transmission Date: 20250409
  Serious: Yes (Other)
  Sender: CSL BEHRING
  Company Number: CA-BEH-2025193072

PATIENT
  Age: 68 Year
  Sex: Male

DRUGS (5)
  1. HUMAN IMMUNOGLOBULIN G [Suspect]
     Active Substance: HUMAN IMMUNOGLOBULIN G
     Indication: Product used for unknown indication
     Dosage: 1 GRAM PER KILOGRAM, QD
     Route: 042
  2. HUMAN IMMUNOGLOBULIN G [Suspect]
     Active Substance: HUMAN IMMUNOGLOBULIN G
     Dosage: 1 GRAM PER KILOGRAM, QD
     Route: 042
  3. HUMAN IMMUNOGLOBULIN G [Suspect]
     Active Substance: HUMAN IMMUNOGLOBULIN G
     Dosage: 1 GRAM PER KILOGRAM, QD
     Route: 042
  4. HEPARIN [Suspect]
     Active Substance: HEPARIN SODIUM
     Indication: Thrombosis prophylaxis
     Route: 058
  5. HEPARIN [Suspect]
     Active Substance: HEPARIN SODIUM
     Dosage: 5000 IU, BID
     Route: 058

REACTIONS (5)
  - Autoimmune heparin-induced thrombocytopenia [Unknown]
  - Iliac artery occlusion [Unknown]
  - Ischaemic stroke [Unknown]
  - Middle cerebral artery stroke [Unknown]
  - Peripheral ischaemia [Unknown]
